FAERS Safety Report 21259374 (Version 3)
Quarter: 2022Q4

REPORT INFORMATION
  Report Type: Spontaneous
  Country: JP (occurrence: JP)
  Receive Date: 20220826
  Receipt Date: 20221201
  Transmission Date: 20230113
  Serious: Yes (Death, Hospitalization, Other)
  Sender: FDA-Public Use
  Company Number: JP-ABBVIE-22K-087-4518902-00

PATIENT
  Age: 54 Year
  Sex: Female
  Weight: 45 kg

DRUGS (10)
  1. HUMIRA [Suspect]
     Active Substance: ADALIMUMAB
     Indication: Psoriatic arthropathy
     Dosage: DOSE INCREASED
     Route: 058
     Dates: start: 202007
  2. HUMIRA [Suspect]
     Active Substance: ADALIMUMAB
     Route: 058
     Dates: start: 201907
  3. SKYRIZI [Suspect]
     Active Substance: RISANKIZUMAB-RZAA
     Indication: Psoriatic arthropathy
     Dosage: FORM STRENGTH: 75 MILLIGRAM
     Route: 058
     Dates: start: 20220301, end: 20220418
  4. RINVOQ [Suspect]
     Active Substance: UPADACITINIB
     Indication: Psoriatic arthropathy
     Dosage: FORM STRENGTH: 15 MILLIGRAM
     Route: 048
     Dates: start: 20210830, end: 20211119
  5. PREDNISOLONE [Suspect]
     Active Substance: PREDNISOLONE
     Indication: Polymyalgia rheumatica
     Dosage: DOSE INCREASED
     Route: 048
     Dates: start: 20220325
  6. PREDNISOLONE [Suspect]
     Active Substance: PREDNISOLONE
     Indication: Polymyalgia rheumatica
     Dosage: MORNING: 10 MG, EVENING: 5MG?LAST ADMIN DATE WAS 2022
     Route: 048
     Dates: start: 20220222
  7. INDAPAMIDE [Concomitant]
     Active Substance: INDAPAMIDE
     Indication: Hypertension
     Dosage: 1 MILLIGRAM
     Route: 048
     Dates: start: 20161216, end: 20220427
  8. LORATADINE [Concomitant]
     Active Substance: LORATADINE
     Indication: Pruritus
     Dosage: 10 MILLIGRAM
     Route: 048
     Dates: start: 20210910, end: 20211105
  9. ROSUVASTATIN CALCIUM [Concomitant]
     Active Substance: ROSUVASTATIN CALCIUM
     Indication: Hypercholesterolaemia
     Dosage: 5 MILLIGRAM
     Route: 048
     Dates: start: 20190111, end: 20220531
  10. CILNIDIPINE [Concomitant]
     Active Substance: CILNIDIPINE
     Indication: Hypertension
     Dosage: 20 MILLIGRAM
     Route: 048
     Dates: start: 20160506, end: 20220420

REACTIONS (19)
  - Cardiac amyloidosis [Fatal]
  - Anaemia [Unknown]
  - Interstitial lung disease [Unknown]
  - Cervix carcinoma [Fatal]
  - Cystitis [Unknown]
  - Diabetes mellitus [Unknown]
  - Diarrhoea [Unknown]
  - Cytomegalovirus infection [Unknown]
  - Polymyalgia rheumatica [Fatal]
  - Dehydration [Unknown]
  - General physical health deterioration [Unknown]
  - Secondary amyloidosis [Fatal]
  - Psoriasis [Unknown]
  - Laboratory test abnormal [Unknown]
  - Arthralgia [Unknown]
  - C-reactive protein increased [Unknown]
  - Cough [Unknown]
  - Arthralgia [Recovering/Resolving]
  - Therapeutic product effect incomplete [Unknown]

NARRATIVE: CASE EVENT DATE: 20200701
